FAERS Safety Report 20874126 (Version 4)
Quarter: 2022Q2

REPORT INFORMATION
  Report Type: Spontaneous
  Country: DE (occurrence: DE)
  Receive Date: 20220525
  Receipt Date: 20220608
  Transmission Date: 20220720
  Serious: Yes (Hospitalization, Other)
  Sender: FDA-Public Use
  Company Number: DE-PFIZER INC-202200051277

PATIENT
  Age: 9 Day
  Sex: Male

DRUGS (10)
  1. VORICONAZOLE [Suspect]
     Active Substance: VORICONAZOLE
     Indication: Aspergillus infection
     Dosage: 5 MG/KG, DAILY (Q12) (DOSE MODIFICATION)
  2. VORICONAZOLE [Suspect]
     Active Substance: VORICONAZOLE
     Indication: Hypotension
     Dosage: 6 MG/KG, DAILY (Q12, LOADING DOSE,D1)
  3. VORICONAZOLE [Suspect]
     Active Substance: VORICONAZOLE
     Dosage: 4 MG/KG, DAILY (Q12, FROM DAY 2)
  4. VORICONAZOLE [Suspect]
     Active Substance: VORICONAZOLE
     Dosage: 6 MILLIGRAM/KILOGRAM, BID LOADING DOSE
  5. VORICONAZOLE [Suspect]
     Active Substance: VORICONAZOLE
     Dosage: 4 MILLIGRAM/KILOGRAM, BID DOSE FROM DAY 2
  6. VORICONAZOLE [Suspect]
     Active Substance: VORICONAZOLE
     Dosage: 5 MILLIGRAM/KILOGRAM, BID
  7. BETAMETHASONE [Suspect]
     Active Substance: BETAMETHASONE
     Indication: Product used for unknown indication
     Dosage: UNK
     Route: 064
  8. HYDROCORTISONE [Suspect]
     Active Substance: HYDROCORTISONE
     Indication: Hypotension
     Dosage: UNK
  9. HYDROCORTISONE [Concomitant]
     Active Substance: HYDROCORTISONE
     Indication: Hypotension
     Dosage: UNK (POST NATAL)
  10. BETAMETHASONE [Concomitant]
     Active Substance: BETAMETHASONE
     Indication: Product used for unknown indication
     Dosage: UNK
     Route: 064

REACTIONS (5)
  - Aspergillus infection [Recovered/Resolved]
  - Drug-induced liver injury [Recovered/Resolved]
  - Foetal exposure during pregnancy [Recovered/Resolved]
  - Hepatotoxicity [Unknown]
  - Product use issue [Unknown]
